FAERS Safety Report 6062019-7 (Version None)
Quarter: 2009Q1

REPORT INFORMATION
  Report Type: 
  Country: None (occurrence: None)
  Receive Date: 20090202
  Receipt Date: 20090126
  Transmission Date: 20090719
  Serious: No
  Sender: FDA-Public Use
  Company Number: US-B.I. PHARMACEUTICALS,INC./RIDGEFIELD-2009-BP-00988BP

PATIENT
  Age: 75 Year
  Sex: Male

DRUGS (4)
  1. ZANTAC 150 [Suspect]
     Indication: DYSPEPSIA
     Dosage: 300MG
     Route: 048
     Dates: start: 20090126
  2. COUMADIN [Concomitant]
     Indication: ATRIAL FIBRILLATION
  3. ARRHYTHMAL [Concomitant]
     Indication: ATRIAL FIBRILLATION
  4. ZOCOR [Concomitant]
     Indication: HYPERCHOLESTEROLAEMIA

REACTIONS (2)
  - CHEST DISCOMFORT [None]
  - DIZZINESS [None]
